FAERS Safety Report 22366702 (Version 1)
Quarter: 2023Q2

REPORT INFORMATION
  Report Type: Report from Study
  Country: DO (occurrence: DO)
  Receive Date: 20230525
  Receipt Date: 20230525
  Transmission Date: 20230722
  Serious: Yes (Hospitalization, Other)
  Sender: FDA-Public Use
  Company Number: DO-002147023-NVSC2023DO117260

PATIENT
  Age: 66 Year
  Sex: Male

DRUGS (2)
  1. SACUBITRIL\VALSARTAN [Suspect]
     Active Substance: SACUBITRIL\VALSARTAN
     Indication: Cardiac disorder
     Dosage: 50 MG, BID
     Route: 048
     Dates: start: 2022, end: 202301
  2. SACUBITRIL\VALSARTAN [Suspect]
     Active Substance: SACUBITRIL\VALSARTAN
     Indication: Cardiomegaly
     Dosage: 100 MG, QD
     Route: 048
     Dates: start: 202301

REACTIONS (7)
  - Femur fracture [Recovering/Resolving]
  - Hip fracture [Recovering/Resolving]
  - Asphyxia [Recovering/Resolving]
  - Accident [Unknown]
  - Swelling [Recovering/Resolving]
  - Fatigue [Unknown]
  - Inappropriate schedule of product administration [Unknown]

NARRATIVE: CASE EVENT DATE: 20230101
